FAERS Safety Report 7928575-6 (Version None)
Quarter: 2011Q4

REPORT INFORMATION
  Report Type: 
  Country: None (occurrence: None)
  Receive Date: 20111118
  Receipt Date: 20111109
  Transmission Date: 20120403
  Serious: Yes (Other)
  Sender: FDA-Public Use
  Company Number: US-JNJFOC-20111104212

PATIENT
  Sex: Female
  Weight: 54.43 kg

DRUGS (3)
  1. REMICADE [Suspect]
     Indication: COLITIS ULCERATIVE
     Route: 042
     Dates: start: 20110801
  2. REMICADE [Suspect]
     Route: 042
     Dates: start: 20110401, end: 20110801
  3. ZOFRAN [Concomitant]
     Indication: NAUSEA
     Dosage: AS NECESSARY
     Route: 048
     Dates: start: 20110401

REACTIONS (2)
  - HAEMORRHAGE [None]
  - COLITIS ULCERATIVE [None]
